FAERS Safety Report 5589651-9 (Version None)
Quarter: 2008Q1

REPORT INFORMATION
  Report Type: 
  Country: None (occurrence: None)
  Receive Date: 20080114
  Receipt Date: 20080103
  Transmission Date: 20080703
  Serious: Yes (Other)
  Sender: FDA-Public Use
  Company Number: B0361406A

PATIENT
  Age: 37 Year
  Sex: Female

DRUGS (5)
  1. PAROXETINE HYDROCHLORIDE [Suspect]
     Indication: DEPRESSION
     Route: 065
     Dates: start: 19960902
  2. LUSTRAL [Concomitant]
     Dates: start: 19971211
  3. CIPRAMIL [Concomitant]
     Dates: start: 19980306
  4. PROZAC [Concomitant]
     Dates: start: 19980916
  5. EFFEXOR [Concomitant]
     Dates: start: 20010621

REACTIONS (14)
  - AGGRESSION [None]
  - AGITATION [None]
  - ANXIETY [None]
  - CONFUSIONAL STATE [None]
  - DIZZINESS [None]
  - INFLUENZA LIKE ILLNESS [None]
  - INTENTIONAL SELF-INJURY [None]
  - MENTAL IMPAIRMENT [None]
  - NAUSEA [None]
  - PAIN [None]
  - SUICIDAL IDEATION [None]
  - TREMOR [None]
  - VISION BLURRED [None]
  - WITHDRAWAL SYNDROME [None]
